FAERS Safety Report 18780150 (Version 1)
Quarter: 2021Q1

REPORT INFORMATION
  Report Type: Spontaneous
  Country: GB (occurrence: GB)
  Receive Date: 20210125
  Receipt Date: 20210125
  Transmission Date: 20210419
  Serious: Yes (Hospitalization, Other)
  Sender: FDA-Public Use
  Company Number: GB-LUPIN PHARMACEUTICALS INC.-2021-00548

PATIENT
  Sex: Female

DRUGS (8)
  1. CLONAZEPAM. [Concomitant]
     Active Substance: CLONAZEPAM
     Indication: PRODUCT USED FOR UNKNOWN INDICATION
     Dosage: 4 MILLIGRAM?VIA A SYRINGE PUMP
     Route: 065
  2. METHADONE [Suspect]
     Active Substance: METHADONE HYDROCHLORIDE
     Indication: BACK PAIN
     Dosage: 65 MILLIGRAM, BID
     Route: 065
  3. OXYCODONE [Suspect]
     Active Substance: OXYCODONE
     Dosage: 350 MILLIGRAM?THE SYRINGE PUMP WAS INCREASED
     Route: 065
  4. MORPHINE [Suspect]
     Active Substance: MORPHINE
     Indication: BACK PAIN
     Dosage: 120 MILLIGRAM, BID?FORMULATION: MODIFIED RELEASE
     Route: 065
  5. OXYCODONE [Suspect]
     Active Substance: OXYCODONE
     Dosage: 300 MILLIGRAM?A SYRINGE PUMP WAS COMMENCED CONTAINING OXYCODONE 300MG; FOLLOWING ADMISSION TO HOSPIC
     Route: 065
  6. HYDROMORPHONE [Suspect]
     Active Substance: HYDROMORPHONE
     Indication: BACK PAIN
     Dosage: 48 MILLIGRAM, BID
     Route: 065
  7. CLONAZEPAM. [Concomitant]
     Active Substance: CLONAZEPAM
     Dosage: 6 MILLIGRAM?DOSE VIA SYRINGE PUMP INCREASED
     Route: 065
  8. OXYCODONE [Suspect]
     Active Substance: OXYCODONE
     Indication: BACK PAIN
     Dosage: 30 MILLIGRAM, BID?FORMULATION: MODIFIED RELEASE
     Route: 065

REACTIONS (2)
  - Constipation [Recovering/Resolving]
  - Drug tolerance [Unknown]
